FAERS Safety Report 20216081 (Version 1)
Quarter: 2021Q4

REPORT INFORMATION
  Report Type: Spontaneous
  Country: DE (occurrence: DE)
  Receive Date: 20211222
  Receipt Date: 20211222
  Transmission Date: 20220303
  Serious: Yes (Hospitalization)
  Sender: FDA-Public Use
  Company Number: DE-NOVARTISPH-NVSC2021DE284795

PATIENT
  Age: 87 Year
  Sex: Female
  Weight: 70 kg

DRUGS (6)
  1. ASPIRIN [Suspect]
     Active Substance: ASPIRIN
     Indication: Product used for unknown indication
     Dosage: 100 MG, QD (1-0-0-0)
     Route: 065
  2. ESOMEPRAZOLE [Concomitant]
     Active Substance: ESOMEPRAZOLE
     Indication: Product used for unknown indication
     Dosage: 40 MG, QD (1-0-0-0)
     Route: 065
  3. TOREMIFENE [Concomitant]
     Active Substance: TOREMIFENE
     Indication: Product used for unknown indication
     Dosage: 10 MG, QD (1-0-0-0)
     Route: 065
  4. METAMIZOLE [Concomitant]
     Active Substance: METAMIZOLE
     Indication: Product used for unknown indication
     Dosage: 20 DRP, BID
     Route: 065
  5. AMOXICILLIN\CLAVULANIC ACID [Concomitant]
     Active Substance: AMOXICILLIN\CLAVULANIC ACID
     Indication: Product used for unknown indication
     Dosage: UNK (875|125 MG, 1-0-1-0)
     Route: 065
  6. BISOPROLOL [Concomitant]
     Active Substance: BISOPROLOL
     Indication: Product used for unknown indication
     Dosage: 2.5 MG, QD (1-0-0-0)
     Route: 065

REACTIONS (9)
  - General physical health deterioration [Unknown]
  - Haematochezia [Unknown]
  - Paresis [Unknown]
  - Systemic infection [Unknown]
  - Cerebral infarction [Unknown]
  - Aphasia [Unknown]
  - Hemiparesis [Unknown]
  - Condition aggravated [Unknown]
  - Renal impairment [Unknown]
